FAERS Safety Report 14498350 (Version 1)
Quarter: 2018Q1

REPORT INFORMATION
  Report Type: Spontaneous
  Country: FR (occurrence: FR)
  Receive Date: 20180207
  Receipt Date: 20180207
  Transmission Date: 20180509
  Serious: Yes (Other)
  Sender: FDA-Public Use
  Company Number: FR-ASTRAZENECA-2018SE14113

PATIENT
  Age: 887 Month
  Sex: Male

DRUGS (5)
  1. TARCEVA [Concomitant]
     Active Substance: ERLOTINIB HYDROCHLORIDE
     Dosage: 150
     Dates: start: 20070125
  2. IRESSA [Suspect]
     Active Substance: GEFITINIB
     Route: 048
     Dates: start: 20100111
  3. TAGRISSO [Concomitant]
     Active Substance: OSIMERTINIB
     Route: 048
     Dates: start: 201611
  4. TAGRISSO [Concomitant]
     Active Substance: OSIMERTINIB
     Route: 048
     Dates: start: 201311
  5. TARCEVA [Concomitant]
     Active Substance: ERLOTINIB HYDROCHLORIDE
     Dosage: 200

REACTIONS (1)
  - Disease progression [Unknown]

NARRATIVE: CASE EVENT DATE: 201005
